FAERS Safety Report 20874212 (Version 1)
Quarter: 2022Q2

REPORT INFORMATION
  Report Type: Report from Study
  Country: DE (occurrence: DE)
  Receive Date: 20220525
  Receipt Date: 20220525
  Transmission Date: 20220721
  Serious: Yes (Hospitalization, Other)
  Sender: FDA-Public Use
  Company Number: DE-PFIZER INC-202200660184

PATIENT
  Sex: Female

DRUGS (17)
  1. METHOTREXATE [Suspect]
     Active Substance: METHOTREXATE
     Indication: Product used for unknown indication
     Dosage: 20 MILLIGRAM, QW, 10 MG, 2X/WEEK
  2. RINVOQ [Suspect]
     Active Substance: UPADACITINIB
     Indication: Product used for unknown indication
     Dosage: 15 MILLIGRAM
     Dates: start: 20210504, end: 20210608
  3. METHOTREXATE SODIUM [Concomitant]
     Active Substance: METHOTREXATE SODIUM
     Dosage: 20 MILLIGRAM, QW, 20 MG, WEEKLY
  4. Selenase [Concomitant]
     Dosage: UNK, QD, 1X/DAY
  5. TOFACITINIB [Concomitant]
     Active Substance: TOFACITINIB
     Dosage: 14 MILLIGRAM, QD (7 MG, 2X/DAY)
  6. TOFACITINIB [Concomitant]
     Active Substance: TOFACITINIB
     Dosage: 10 MILLIGRAM, QD (5 MG,  2X/DAY)
  7. Spasmex [Concomitant]
     Dosage: 30 MILLIGRAM, QD (15 MG, 2X/DAY)
  8. SIMVASTATIN [Concomitant]
     Active Substance: SIMVASTATIN
     Dosage: 20 MILLIGRAM, QD )20 MG, 1X/DAY)
  9. FOLIC ACID [Concomitant]
     Active Substance: FOLIC ACID
     Dosage: 5 MILLIGRAM, QD (5 MG, 1X/DAY)
  10. VITAMIN B COMPLEX [Concomitant]
     Active Substance: CYANOCOBALAMIN\DEXPANTHENOL\NIACINAMIDE\PYRIDOXINE HYDROCHLORIDE\RIBOFLAVIN 5^-PHOSPHATE SODIUM\THIA
     Dosage: UNK, QD, 1X/DAY
  11. TORSEMIDE [Concomitant]
     Active Substance: TORSEMIDE
     Dosage: 5 MILLIGRAM, QD
  12. ALENDRONIC ACID [Concomitant]
     Active Substance: ALENDRONIC ACID
     Dosage: 70 MILLIGRAM, QD, 70 MG, 1X/DAY
  13. CHOLECALCIFEROL [Concomitant]
     Active Substance: CHOLECALCIFEROL
     Dosage: 20000 INTERNATIONAL UNIT, CYCLE,  EVERY 2 WEEKS, CYCLIC
  14. METOPROLOL [Concomitant]
     Active Substance: METOPROLOL
     Dosage: 95 MILLIGRAM, QD (47.5 MG, 2X/DAY)
  15. XARELTO [Concomitant]
     Active Substance: RIVAROXABAN
     Dosage: UNK, CURRENT PAUSE UNTIL WOUND HEALING
  16. METHYLPREDNISOLONE [Concomitant]
     Active Substance: METHYLPREDNISOLONE
     Dosage: 8 MILLIGRAM, QD, 8 MG, 1X/DAY
  17. ENOXAPARIN SODIUM [Concomitant]
     Active Substance: ENOXAPARIN SODIUM
     Dosage: UNK

REACTIONS (2)
  - Bursitis infective [Not Recovered/Not Resolved]
  - Sinus node dysfunction [Unknown]

NARRATIVE: CASE EVENT DATE: 20210928
